FAERS Safety Report 4576559-0 (Version None)
Quarter: 2005Q1

REPORT INFORMATION
  Report Type: 
  Country: None (occurrence: None)
  Receive Date: 20050119
  Receipt Date: 20040203
  Transmission Date: 20050727
  Serious: Yes (Other)
  Sender: FDA-Public Use
  Company Number: A03200302066

PATIENT
  Age: 69 Year
  Sex: Male
  Weight: 87.0906 kg

DRUGS (6)
  1. PLAVIX [Suspect]
     Indication: CORONARY ARTERIAL STENT INSERTION
     Dosage: 75 MG QD - ORAL
     Route: 048
     Dates: start: 20030723, end: 20030101
  2. PLAVIX [Suspect]
     Indication: CORONARY ARTERIAL STENT INSERTION
     Dosage: 75 MG QD - ORAL
     Route: 048
     Dates: start: 20030101, end: 20040101
  3. PRAVACHOL [Suspect]
     Indication: CORONARY ARTERIAL STENT INSERTION
     Dosage: 40 MG QD - ORAL
     Route: 048
     Dates: start: 20030710
  4. PRAVACHOL [Suspect]
     Indication: POSTOPERATIVE CARE
     Dosage: 40 MG QD - ORAL
     Route: 048
     Dates: start: 20030710
  5. METOPROLOL [Concomitant]
  6. UBIDECARENONE [Concomitant]

REACTIONS (9)
  - ABDOMINAL PAIN [None]
  - BODY TEMPERATURE INCREASED [None]
  - DEPRESSION [None]
  - DIZZINESS [None]
  - GROIN PAIN [None]
  - HYPERTENSION [None]
  - SERUM FERRITIN INCREASED [None]
  - SPLENIC HAEMORRHAGE [None]
  - SPLENOMEGALY [None]
